FAERS Safety Report 9828589 (Version 1)
Quarter: 2014Q1

REPORT INFORMATION
  Report Type: Spontaneous
  Country: IT (occurrence: IT)
  Receive Date: 20140117
  Receipt Date: 20140117
  Transmission Date: 20141002
  Serious: Yes (Hospitalization)
  Sender: FDA-Public Use
  Company Number: PHHY2014IT004007

PATIENT
  Age: 86 Year
  Sex: Female

DRUGS (5)
  1. METFORMIN [Suspect]
     Dosage: 3000 MG, QD
     Route: 048
  2. PLAVIX [Suspect]
     Dosage: 75 MG, UNK
     Route: 048
  3. TORVAST [Suspect]
     Dosage: 40 MG, QD
     Route: 048
     Dates: start: 20131001, end: 20131008
  4. LEVOPRAID [Concomitant]
     Dosage: 37.5 MG, UNK
     Route: 042
     Dates: start: 20131002, end: 20131008
  5. FOSFOMICINA RATIOPHARM [Concomitant]
     Dosage: 1 DF, UNK
     Route: 048
     Dates: start: 20131006, end: 20131007

REACTIONS (3)
  - Hepatic failure [Recovered/Resolved]
  - Intracardiac thrombus [Recovered/Resolved]
  - Hepatic enzyme increased [Recovered/Resolved]
